FAERS Safety Report 16306855 (Version 2)
Quarter: 2019Q2

REPORT INFORMATION
  Report Type: Spontaneous
  Country: US (occurrence: US)
  Receive Date: 20190513
  Receipt Date: 20190531
  Transmission Date: 20190711
  Serious: No
  Sender: FDA-Public Use
  Company Number: US-TEVA-2019-US-1047083

PATIENT
  Sex: Male

DRUGS (1)
  1. TESTOSTERONE GEL 1% [Suspect]
     Active Substance: TESTOSTERONE
     Route: 065

REACTIONS (1)
  - Drug ineffective [Unknown]
